FAERS Safety Report 6713384-6 (Version None)
Quarter: 2010Q2

REPORT INFORMATION
  Report Type: 
  Country: None (occurrence: None)
  Receive Date: 20100506
  Receipt Date: 20100428
  Transmission Date: 20101027
  Serious: Yes (Hospitalization)
  Sender: FDA-Public Use
  Company Number: FI-AMGEN-KDL404364

PATIENT
  Age: 45 Year
  Sex: Female
  Weight: 66 kg

DRUGS (6)
  1. NEULASTA [Suspect]
     Indication: CHEMOTHERAPY
     Route: 058
     Dates: start: 20100217, end: 20100217
  2. NEUPOGEN [Suspect]
     Indication: DRUG USE FOR UNKNOWN INDICATION
  3. DEXAMETHASONE [Concomitant]
     Dates: start: 20100215, end: 20100219
  4. TAXOTERE [Concomitant]
     Route: 042
     Dates: start: 20100216
  5. PRIMPERAN TAB [Concomitant]
     Route: 048
     Dates: start: 20100216, end: 20100220
  6. HERCEPTIN [Concomitant]
     Route: 042
     Dates: start: 20100215

REACTIONS (2)
  - BONE PAIN [None]
  - RECTAL HAEMORRHAGE [None]
